FAERS Safety Report 21644079 (Version 1)
Quarter: 2022Q4

REPORT INFORMATION
  Report Type: Spontaneous
  Country: US (occurrence: None)
  Receive Date: 20221125
  Receipt Date: 20221125
  Transmission Date: 20230112
  Serious: Yes (Death)
  Sender: FDA-Public Use
  Company Number: 2022A388387

PATIENT
  Age: 31105 Day
  Sex: Male
  Weight: 67.6 kg

DRUGS (1)
  1. SYMBICORT [Suspect]
     Active Substance: BUDESONIDE\FORMOTEROL FUMARATE DIHYDRATE
     Indication: Cardiac failure congestive
     Dosage: 160 MCG, 2 INHALATIONS TWICE A DAY,160UG/INHAL TWO TIMES A DAY
     Route: 055
     Dates: end: 20221022

REACTIONS (2)
  - Death [Fatal]
  - Off label use [Unknown]

NARRATIVE: CASE EVENT DATE: 20221022
